FAERS Safety Report 8830115 (Version 1)
Quarter: 2012Q4

REPORT INFORMATION
  Report Type: Spontaneous
  Country: US (occurrence: None)
  Receive Date: 20121004
  Receipt Date: 20121004
  Transmission Date: 20130627
  Serious: Yes (Other)
  Sender: FDA-Public Use
  Company Number: DSA_59931_2012

PATIENT
  Sex: Male

DRUGS (2)
  1. WELLBUTRIN [Suspect]
     Dosage: DF
     Dates: start: 2009
  2. WELLBUTRIN [Suspect]
     Dosage: DF
     Dates: start: 2009

REACTIONS (6)
  - Convulsion [None]
  - Blindness [None]
  - Headache [None]
  - Confusional state [None]
  - Nerve injury [None]
  - Off label use [None]
